FAERS Safety Report 14215974 (Version 1)
Quarter: 2017Q4

REPORT INFORMATION
  Report Type: Spontaneous
  Country: US (occurrence: US)
  Receive Date: 20171122
  Receipt Date: 20171122
  Transmission Date: 20180321
  Serious: No
  Sender: FDA-Public Use
  Company Number: US-PFIZER INC-2017007120

PATIENT
  Age: 8 Year
  Sex: Female
  Weight: 21 kg

DRUGS (3)
  1. GENOTROPIN [Suspect]
     Active Substance: SOMATROPIN
     Indication: GROWTH HORMONE DEFICIENCY
     Dosage: 0.8 MG AND 1.0 MG, ALTERNATE DAY
     Dates: start: 20161224
  2. GENOTROPIN [Suspect]
     Active Substance: SOMATROPIN
     Dosage: UNK
  3. GENOTROPIN [Suspect]
     Active Substance: SOMATROPIN
     Dosage: 0.9 MG, UNK
     Dates: start: 201612

REACTIONS (3)
  - Product preparation error [Unknown]
  - Drug prescribing error [Unknown]
  - Goitre [Unknown]

NARRATIVE: CASE EVENT DATE: 20170104
